FAERS Safety Report 8542335-7 (Version None)
Quarter: 2012Q3

REPORT INFORMATION
  Report Type: 
  Country: None (occurrence: None)
  Receive Date: 20120726
  Receipt Date: 20111027
  Transmission Date: 20120928
  Serious: No
  Sender: FDA-Public Use
  Company Number: US-ASTRAZENECA-2011SE60039

PATIENT
  Age: 60 Year
  Sex: Female
  Weight: 73.9 kg

DRUGS (4)
  1. CYMBALTA [Concomitant]
     Indication: ANXIETY
  2. KLONOPIN [Concomitant]
     Indication: ANXIETY
  3. SEROQUEL [Suspect]
     Indication: DEPRESSION
     Route: 048
     Dates: start: 20110801
  4. HIGH BLOOD PRESSURE MEDICATION [Concomitant]
     Indication: HYPERTENSION

REACTIONS (2)
  - FEELING ABNORMAL [None]
  - DRUG DOSE OMISSION [None]
